FAERS Safety Report 25624787 (Version 1)
Quarter: 2025Q3

REPORT INFORMATION
  Report Type: Spontaneous
  Country: US (occurrence: US)
  Receive Date: 20250731
  Receipt Date: 20250731
  Transmission Date: 20251021
  Serious: Yes (Other)
  Sender: AMGEN
  Company Number: US-AMGEN-USASP2025148115

PATIENT
  Age: 70 Year
  Sex: Female

DRUGS (2)
  1. OTEZLA [Suspect]
     Active Substance: APREMILAST
     Indication: Psoriatic arthropathy
     Dosage: 1 DOSAGE FORM, BID
     Route: 048
     Dates: start: 202505, end: 20250720
  2. OTEZLA [Suspect]
     Active Substance: APREMILAST
     Dosage: UNK UNK, BID (DOSED AT HALF TABLET TWICE DAILY)
     Route: 048
     Dates: start: 2025, end: 20250720

REACTIONS (3)
  - Blood pressure increased [Recovering/Resolving]
  - Headache [Recovering/Resolving]
  - Off label use [Unknown]

NARRATIVE: CASE EVENT DATE: 20250101
